FAERS Safety Report 14310526 (Version 2)
Quarter: 2018Q2

REPORT INFORMATION
  Report Type: Spontaneous
  Country: IT (occurrence: IT)
  Receive Date: 20171220
  Receipt Date: 20180605
  Transmission Date: 20180711
  Serious: Yes (Hospitalization)
  Sender: FDA-Public Use
  Company Number: IT-TAKEDA-2017TUS025891

PATIENT
  Age: 45 Year
  Sex: Male
  Weight: 70 kg

DRUGS (4)
  1. ENTYVIO [Suspect]
     Active Substance: VEDOLIZUMAB
     Indication: CROHN^S DISEASE
     Dosage: 300 MG, UNK
     Route: 042
     Dates: start: 20161104, end: 20170623
  2. TICHE [Concomitant]
     Indication: HORMONE REPLACEMENT THERAPY
     Dosage: 150 MG, UNK
     Route: 048
  3. TRIATEC HCT [Concomitant]
     Active Substance: HYDROCHLOROTHIAZIDE\RAMIPRIL
     Indication: HYPERTENSION
     Dosage: 5 MG/ 25 MG
     Route: 048
  4. MESAVANCOL [Concomitant]
     Active Substance: MESALAMINE
     Dosage: 3600 MG, UNK
     Route: 048

REACTIONS (6)
  - Cervicobrachial syndrome [Recovered/Resolved with Sequelae]
  - Clonus [Recovered/Resolved with Sequelae]
  - Back pain [Recovered/Resolved with Sequelae]
  - Myalgia [Recovered/Resolved with Sequelae]
  - Pyrexia [Recovered/Resolved with Sequelae]
  - Arthritis [Recovered/Resolved with Sequelae]

NARRATIVE: CASE EVENT DATE: 20161208
